FAERS Safety Report 16857441 (Version 3)
Quarter: 2019Q4

REPORT INFORMATION
  Report Type: Spontaneous
  Country: IN (occurrence: IN)
  Receive Date: 20190926
  Receipt Date: 20191125
  Transmission Date: 20200122
  Serious: Yes (Hospitalization)
  Sender: FDA-Public Use
  Company Number: IN-PFIZER INC-2019410988

PATIENT
  Age: 73 Year
  Sex: Female

DRUGS (20)
  1. ZOLEDRONIC ACID [Suspect]
     Active Substance: ZOLEDRONIC ACID
     Dosage: 4 MG, MONTHLY (DOSE6)
     Dates: start: 20190529
  2. MAXGALIN [Concomitant]
     Dosage: 150 MG, DAILY (0-0-1 X TO CONTINUE (AT 7PM, IRRESPECTIVE OF FOOD INTAKE)
  3. PALBACE [Suspect]
     Active Substance: PALBOCICLIB
     Indication: BREAST CANCER METASTATIC
     Dosage: 125 MG, CYCLIC (ONCE A DAY 3 WEEKS ON AND 1 WEEK OFF/ 1-0-0)
     Route: 048
     Dates: start: 20190105
  4. ZOLEDRONIC ACID [Suspect]
     Active Substance: ZOLEDRONIC ACID
     Dosage: 4 MG, MONTHLY (DOSE2)
     Dates: start: 20190105
  5. SHELCAL [Suspect]
     Active Substance: CALCIUM CARBONATE\CHOLECALCIFEROL
     Dosage: 500 MG, 1X/DAY (0-1-0 X AFTER FOOD)
  6. CLONOTRIL [Concomitant]
     Active Substance: CLONAZEPAM
     Dosage: 1 MG, 1X/DAY (0-0-1 X TO CONTINUE)
  7. ZOLEDRONIC ACID [Suspect]
     Active Substance: ZOLEDRONIC ACID
     Dosage: 4 MG, MONTHLY (DOSE4)
     Dates: start: 20190326
  8. CALAMINE [Concomitant]
     Active Substance: CALAMINE\FERRIC OXIDE RED\ZINC OXIDE
     Dosage: UNK (LOTION FOR LOCAL APPLICATION)
     Route: 061
  9. MORCONTIN CR [Concomitant]
     Dosage: 30 MG, DAILY (10MG 1-0-2 X TO CONTINUE)
  10. DOLO 650 [Concomitant]
     Dosage: 650 MG, 3X/DAY(1-1-1 X TO CONTINUE)
  11. ZOLEDRONIC ACID [Suspect]
     Active Substance: ZOLEDRONIC ACID
     Dosage: 4 MG, MONTHLY (DOSE3)
     Dates: start: 20190226
  12. ZOLEDRONIC ACID [Suspect]
     Active Substance: ZOLEDRONIC ACID
     Dosage: 4 MG, MONTHLY (DOSE5)
     Dates: start: 20190425
  13. ZOLEDRONIC ACID [Suspect]
     Active Substance: ZOLEDRONIC ACID
     Dosage: 4 MG, MONTHLY (DOSE7)
     Dates: start: 20190625
  14. ZOLEDRONIC ACID [Suspect]
     Active Substance: ZOLEDRONIC ACID
     Dosage: 4 MG, MONTHLY (DOSE1)
     Dates: start: 20181229
  15. ZOLEDRONIC ACID [Suspect]
     Active Substance: ZOLEDRONIC ACID
     Dosage: 4 MG, MONTHLY (DOSE9)
     Dates: start: 20190829
  16. LETROZOLE. [Suspect]
     Active Substance: LETROZOLE
     Dosage: 2.5 MG, 1X/DAY (0-0-1 X TO CONTINUE (AFTER FOOD))
  17. HEXIDINE [Concomitant]
     Active Substance: CHLORHEXIDINE
     Dosage: UNK, 3X/DAY
  18. KATADOL [Concomitant]
     Dosage: 100 MG, 2X/DAY (1-0-1 X TO CONTINUE, AFTER FOOD)
  19. PAN [Concomitant]
     Dosage: 40 MG, 2X/DAY (1-0-1 X TO CONTINUE 30 MINUTES BEFORE FOOD))
  20. ZOLEDRONIC ACID [Suspect]
     Active Substance: ZOLEDRONIC ACID
     Dosage: 4 MG, MONTHLY (DOSE8)
     Dates: start: 20190726

REACTIONS (8)
  - Myofascial pain syndrome [Unknown]
  - Anxiety [Unknown]
  - Insomnia [Unknown]
  - Dyspnoea [Unknown]
  - Mental disorder [Unknown]
  - Constipation [Unknown]
  - Pain [Unknown]
  - Somatic symptom disorder [Unknown]

NARRATIVE: CASE EVENT DATE: 2019
